FAERS Safety Report 16133183 (Version 2)
Quarter: 2019Q2

REPORT INFORMATION
  Report Type: Spontaneous
  Country: US (occurrence: US)
  Receive Date: 20190329
  Receipt Date: 20190430
  Transmission Date: 20190711
  Serious: Yes (Hospitalization)
  Sender: FDA-Public Use
  Company Number: US-ROCHE-2285271

PATIENT
  Age: 31 Year
  Sex: Female
  Weight: 98.06 kg

DRUGS (3)
  1. ADDERALL [Concomitant]
     Active Substance: AMPHETAMINE ASPARTATE\AMPHETAMINE SULFATE\DEXTROAMPHETAMINE SACCHARATE\DEXTROAMPHETAMINE SULFATE
     Indication: ATTENTION DEFICIT/HYPERACTIVITY DISORDER
     Dosage: TAKING FOR PAST FEW MONTHS
     Route: 065
  2. TAMIFLU [Suspect]
     Active Substance: OSELTAMIVIR PHOSPHATE
     Indication: INFLUENZA
     Dosage: TOOK ONE PILL, UNKNOWN MG 3-4 WEEKS AGO
     Route: 048
  3. PAXIL [Concomitant]
     Active Substance: PAROXETINE HYDROCHLORIDE
     Indication: ANXIETY
     Route: 065

REACTIONS (13)
  - Hypokinesia [Not Recovered/Not Resolved]
  - Movement disorder [Recovered/Resolved]
  - Oesophageal compression [Unknown]
  - Aphasia [Recovered/Resolved]
  - Trismus [Unknown]
  - Hemiplegia [Recovered/Resolved]
  - Muscular weakness [Recovered/Resolved]
  - Dyspnoea [Recovered/Resolved]
  - Mental impairment [Unknown]
  - Cerebral disorder [Unknown]
  - Throat tightness [Recovered/Resolved]
  - Speech disorder [Recovered/Resolved]
  - Emotional distress [Unknown]

NARRATIVE: CASE EVENT DATE: 20190315
